FAERS Safety Report 4869156-0 (Version None)
Quarter: 2005Q4

REPORT INFORMATION
  Report Type: 
  Country: None (occurrence: None)
  Receive Date: 20051230
  Receipt Date: 20051221
  Transmission Date: 20060501
  Serious: Yes (Hospitalization, Other)
  Sender: FDA-Public Use
  Company Number: US-JNJFOC-20051201806

PATIENT
  Sex: Male
  Weight: 44.3 kg

DRUGS (8)
  1. REMICADE [Suspect]
     Route: 042
  2. REMICADE [Suspect]
     Route: 042
  3. REMICADE [Suspect]
     Route: 042
  4. REMICADE [Suspect]
     Indication: CROHN'S DISEASE
     Route: 042
  5. IMURAN [Concomitant]
     Indication: CROHN'S DISEASE
  6. PENTASA [Concomitant]
  7. AZATHIOPRINE [Concomitant]
  8. CIPRO [Concomitant]

REACTIONS (4)
  - GASTROINTESTINAL DISORDER [None]
  - HEPATOSPLENOMEGALY [None]
  - RASH [None]
  - T-CELL LYMPHOMA [None]
